FAERS Safety Report 11678083 (Version 1)
Quarter: 2015Q4

REPORT INFORMATION
  Report Type: Spontaneous
  Country: AU (occurrence: AU)
  Receive Date: 20151028
  Receipt Date: 20151028
  Transmission Date: 20160304
  Serious: Yes (Life-Threatening, Hospitalization, Other)
  Sender: FDA-Public Use
  Company Number: PHHY2015AU138296

PATIENT
  Age: 20 Year
  Sex: Female

DRUGS (4)
  1. ISONIAZID. [Suspect]
     Active Substance: ISONIAZID
     Indication: PRODUCT USED FOR UNKNOWN INDICATION
     Dosage: 25 G, UNK
     Route: 065
  2. PYRIDOXINE [Concomitant]
     Active Substance: PYRIDOXINE
     Indication: PRODUCT USED FOR UNKNOWN INDICATION
     Dosage: 2.5 G, UNK
  3. PYRIDOXINE [Concomitant]
     Active Substance: PYRIDOXINE
     Route: 065
  4. PYRIDOXINE [Concomitant]
     Active Substance: PYRIDOXINE
     Dosage: 5 G, UNK
     Route: 042

REACTIONS (4)
  - Blood creatine phosphokinase increased [Recovered/Resolved]
  - Overdose [Recovered/Resolved]
  - Generalised tonic-clonic seizure [Recovered/Resolved]
  - Blood lactic acid increased [Recovered/Resolved]
